FAERS Safety Report 5950375-7 (Version None)
Quarter: 2008Q4

REPORT INFORMATION
  Report Type: 
  Country: None (occurrence: None)
  Receive Date: 20081112
  Receipt Date: 20081105
  Transmission Date: 20090506
  Serious: Yes (Other)
  Sender: FDA-Public Use
  Company Number: PHHY2008JP24121

PATIENT
  Age: 84 Year
  Sex: Female

DRUGS (5)
  1. DIOVAN [Suspect]
     Indication: HYPERTENSION
     Dosage: 20 MG, QD
     Route: 048
     Dates: start: 20080419
  2. PROMAC                                  /JPN/ [Concomitant]
     Dosage: 150 MG, UNK
     Route: 048
     Dates: start: 20071031
  3. AMLODIN [Concomitant]
     Dosage: 5 MG, UNK
     Route: 048
     Dates: start: 20071031
  4. ZYLORIC ^FRESENIUS^ [Concomitant]
     Dosage: 100 MG, UNK
     Route: 048
     Dates: start: 20071031
  5. ALFAROL [Concomitant]
     Dosage: 0.25 MG, UNK
     Route: 048
     Dates: start: 20071031

REACTIONS (1)
  - CONVULSION [None]
